FAERS Safety Report 13142918 (Version 5)
Quarter: 2018Q1

REPORT INFORMATION
  Report Type: Spontaneous
  Country: US (occurrence: US)
  Receive Date: 20170124
  Receipt Date: 20180319
  Transmission Date: 20180508
  Serious: Yes (Hospitalization, Other)
  Sender: FDA-Public Use
  Company Number: US-PFIZER INC-2017026477

PATIENT
  Age: 74 Year
  Sex: Female
  Weight: 91.63 kg

DRUGS (11)
  1. SPIRONOLACTONE. [Concomitant]
     Active Substance: SPIRONOLACTONE
     Indication: DIURETIC THERAPY
     Dosage: 25 MG, 1X/DAY
     Route: 048
  2. METFORMIN [Concomitant]
     Active Substance: METFORMIN HYDROCHLORIDE
     Indication: DIABETES MELLITUS
     Dosage: 500 MG, 1X/DAY
     Route: 048
  3. REVATIO [Suspect]
     Active Substance: SILDENAFIL CITRATE
     Indication: LUNG DISORDER
     Dosage: 20 MG, 3X/DAY
     Route: 048
     Dates: start: 2016, end: 201705
  4. CALCIUM+ D [Concomitant]
     Dosage: UNK, 2X/DAY (TWICE A DAY BY ACCIDENT WITH THE POTASSIUM)
  5. COUMADIN [Concomitant]
     Active Substance: WARFARIN SODIUM
     Indication: ATRIAL FIBRILLATION
     Dosage: 2.5 MG, ALTERNATE DAY(EVERY OTHER DAY)
  6. DILTIAZEM HCL [Concomitant]
     Active Substance: DILTIAZEM HYDROCHLORIDE
     Indication: CARDIAC DISORDER
     Dosage: 120 MG, 2X/DAY
     Route: 048
  7. REVATIO [Suspect]
     Active Substance: SILDENAFIL CITRATE
     Indication: PULMONARY HYPERTENSION
     Dosage: 20 MG, 3X/DAY
     Route: 048
     Dates: start: 2016
  8. COUMADIN [Concomitant]
     Active Substance: WARFARIN SODIUM
     Dosage: 5 MG, ALTERNATE DAY(EVERY OTHER DAY)
  9. METOLAZONE. [Concomitant]
     Active Substance: METOLAZONE
     Indication: DIURETIC THERAPY
     Dosage: 5 MG, 3X/DAY
     Route: 048
  10. CALCIUM+ D [Concomitant]
     Indication: SUPPLEMENTATION THERAPY
     Dosage: 2400 MG, 1X/DAY (2 TABLETS)
     Route: 048
  11. POTASSIUM [Concomitant]
     Active Substance: POTASSIUM
     Indication: MINERAL SUPPLEMENTATION
     Dosage: 40 MEQ, 2X/DAY  (2 TABLETS )
     Route: 048

REACTIONS (13)
  - Ventricular tachycardia [Unknown]
  - Malaise [Unknown]
  - Cystitis [Unknown]
  - Nasopharyngitis [Unknown]
  - Fall [Recovered/Resolved]
  - Confusional state [Unknown]
  - Decreased appetite [Unknown]
  - Spinal fracture [Recovered/Resolved]
  - Blood electrolytes abnormal [Unknown]
  - Urinary tract infection [Unknown]
  - Dizziness [Unknown]
  - Contusion [Unknown]
  - Influenza [Recovering/Resolving]

NARRATIVE: CASE EVENT DATE: 20161226
